FAERS Safety Report 24405388 (Version 1)
Quarter: 2024Q4

REPORT INFORMATION
  Report Type: Spontaneous
  Country: PL (occurrence: PL)
  Receive Date: 20241007
  Receipt Date: 20241007
  Transmission Date: 20250115
  Serious: Yes (Other)
  Sender: CELLTRION
  Company Number: None

PATIENT

DRUGS (4)
  1. BEVACIZUMAB [Suspect]
     Active Substance: BEVACIZUMAB
     Indication: Colon cancer
     Dosage: 1000 MG
     Route: 042
     Dates: start: 20230627, end: 20230627
  2. FLUOROURACIL [Suspect]
     Active Substance: FLUOROURACIL
     Indication: Colon cancer
     Dosage: 800 MG
     Route: 042
     Dates: start: 20230627, end: 20230628
  3. FLUOROURACIL [Suspect]
     Active Substance: FLUOROURACIL
     Dosage: 1200 MG
     Route: 042
     Dates: start: 20230627, end: 20230629
  4. OXALIPLATIN [Suspect]
     Active Substance: OXALIPLATIN
     Indication: Colon cancer
     Dosage: 170 MG
     Route: 042
     Dates: start: 20230627, end: 20230627

REACTIONS (3)
  - Thrombocytopenia [Unknown]
  - Neutropenia [Unknown]
  - Intentional product use issue [Unknown]
